FAERS Safety Report 10693954 (Version 2)
Quarter: 2015Q1

REPORT INFORMATION
  Report Type: Spontaneous
  Country: US (occurrence: US)
  Receive Date: 20150106
  Receipt Date: 20150305
  Transmission Date: 20150721
  Serious: No
  Sender: FDA-Public Use
  Company Number: US-PFIZER INC-2015001138

PATIENT
  Age: 59 Year
  Sex: Male
  Weight: 99 kg

DRUGS (3)
  1. VIAGRA [Suspect]
     Active Substance: SILDENAFIL CITRATE
     Indication: ERECTILE DYSFUNCTION
     Dosage: ONE-HALF TO ONE 100MG TABLET ONE HOUR PRIOR TO SEX USUALLY ONCE DAILY
     Route: 048
     Dates: start: 20130207
  2. LIPITOR [Concomitant]
     Active Substance: ATORVASTATIN CALCIUM
     Indication: BLOOD CHOLESTEROL INCREASED
     Dosage: 20 MG, DAILY FOR 10 YEARS
     Route: 048
     Dates: start: 2004
  3. VIAGRA [Suspect]
     Active Substance: SILDENAFIL CITRATE
     Dosage: UNK, 1X/DAY

REACTIONS (2)
  - Vomiting [Recovered/Resolved]
  - Abdominal discomfort [Recovered/Resolved]
